FAERS Safety Report 5845097-7 (Version None)
Quarter: 2008Q3

REPORT INFORMATION
  Report Type: 
  Country: None (occurrence: None)
  Receive Date: 20080813
  Receipt Date: 20080813
  Transmission Date: 20090109
  Serious: Yes (Other)
  Sender: FDA-Public Use
  Company Number: None

PATIENT
  Age: 52 Year
  Sex: Female
  Weight: 77.1115 kg

DRUGS (18)
  1. LYRICA [Suspect]
     Indication: FIBROMYALGIA
     Dosage: 50-100MG Q HS PO
     Route: 048
     Dates: start: 20080726, end: 20080731
  2. LYRICA [Suspect]
     Indication: PAIN
     Dosage: 50-100MG Q HS PO
     Route: 048
     Dates: start: 20080726, end: 20080731
  3. COZAAR [Concomitant]
  4. PROTONIX [Concomitant]
  5. FUROSEMIDE [Concomitant]
  6. KLOR-CON [Concomitant]
  7. ACCOLATE [Concomitant]
  8. ADVAIR DISKUS 100/50 [Concomitant]
  9. BROVANA NEBULIZER [Concomitant]
  10. NASACORT AQ [Concomitant]
  11. FLUCONAZOLE [Concomitant]
  12. MYCELEX [Concomitant]
  13. ESTROGEL TOPICAL [Concomitant]
  14. ESTROGEN/PROGEST HOMEOPATHIC PRESCRIPTION CREAM [Concomitant]
  15. TRAMADOL HCL [Concomitant]
  16. ZYRTEC [Concomitant]
  17. PEPCID [Concomitant]
  18. GUAIFENESIN [Concomitant]

REACTIONS (8)
  - DISTURBANCE IN ATTENTION [None]
  - DYSARTHRIA [None]
  - DYSPHAGIA [None]
  - DYSPHASIA [None]
  - HYPOAESTHESIA [None]
  - MOTOR DYSFUNCTION [None]
  - PAIN [None]
  - THINKING ABNORMAL [None]
